FAERS Safety Report 19887750 (Version 1)
Quarter: 2021Q3

REPORT INFORMATION
  Report Type: Report from Study
  Country: US (occurrence: US)
  Receive Date: 20210928
  Receipt Date: 20210928
  Transmission Date: 20211014
  Serious: Yes (Disabling)
  Sender: FDA-Public Use
  Company Number: US-SA-2021SA316486

PATIENT
  Age: 44 Year
  Sex: Female

DRUGS (1)
  1. TERIFLUNOMIDE. [Suspect]
     Active Substance: TERIFLUNOMIDE
     Dosage: UNK

REACTIONS (5)
  - Throat clearing [Unknown]
  - Product dose omission issue [Unknown]
  - Impaired work ability [Unknown]
  - Memory impairment [Unknown]
  - Aphasia [Unknown]
